FAERS Safety Report 13024491 (Version 8)
Quarter: 2019Q1

REPORT INFORMATION
  Report Type: Report from Study
  Country: US (occurrence: US)
  Receive Date: 20161213
  Receipt Date: 20190308
  Transmission Date: 20190417
  Serious: Yes (Hospitalization)
  Sender: FDA-Public Use
  Company Number: US-ACTELION-A-US2016-145121

PATIENT
  Age: 62 Year
  Sex: Male
  Weight: 70.75 kg

DRUGS (7)
  1. VELETRI [Suspect]
     Active Substance: EPOPROSTENOL
     Indication: PULMONARY ARTERIAL HYPERTENSION
     Dosage: 42 NG, UNK
     Route: 042
     Dates: start: 20160310
  2. LASIX [Concomitant]
     Active Substance: FUROSEMIDE
  3. VELETRI [Suspect]
     Active Substance: EPOPROSTENOL
     Dosage: 93 NG/KG, PER MIN
     Route: 042
  4. TRACLEER [Concomitant]
     Active Substance: BOSENTAN
     Indication: PULMONARY ARTERIAL HYPERTENSION
  5. SILDENAFIL. [Concomitant]
     Active Substance: SILDENAFIL
  6. OPSUMIT [Suspect]
     Active Substance: MACITENTAN
     Indication: PULMONARY ARTERIAL HYPERTENSION
     Dosage: 10 MG, QD
     Route: 048
     Dates: start: 20150402
  7. ELIQUIS [Concomitant]
     Active Substance: APIXABAN

REACTIONS (17)
  - Device malfunction [Unknown]
  - Abdominal distension [Unknown]
  - Fatigue [Unknown]
  - Complication associated with device [Recovered/Resolved]
  - Fluid retention [Unknown]
  - Pyloric stenosis [Recovered/Resolved]
  - Weight increased [Unknown]
  - Hospitalisation [Unknown]
  - Catheter placement [Unknown]
  - Vascular device infection [Recovered/Resolved]
  - Balloon atrial septostomy [Unknown]
  - Pulmonary hypertension [Recovered/Resolved]
  - Brain natriuretic peptide increased [Unknown]
  - Condition aggravated [Recovered/Resolved]
  - Device alarm issue [Unknown]
  - Cellulitis [Unknown]
  - Thrombosis in device [Unknown]

NARRATIVE: CASE EVENT DATE: 20161004
